FAERS Safety Report 24105625 (Version 1)
Quarter: 2024Q3

REPORT INFORMATION
  Report Type: Spontaneous
  Country: US (occurrence: None)
  Receive Date: 20240716
  Receipt Date: 20240716
  Transmission Date: 20241017
  Serious: Yes (Other)
  Sender: Public
  Company Number: None

PATIENT
  Sex: 0

DRUGS (2)
  1. LAMOTRIGINE [Suspect]
     Active Substance: LAMOTRIGINE
  2. HALOPERIDOL [Suspect]
     Active Substance: HALOPERIDOL

REACTIONS (4)
  - Speech disorder [None]
  - Dysphagia [None]
  - Stevens-Johnson syndrome [None]
  - Anaphylactic reaction [None]
